FAERS Safety Report 6537937-3 (Version None)
Quarter: 2010Q1

REPORT INFORMATION
  Report Type: 
  Country: None (occurrence: None)
  Receive Date: 20100114
  Receipt Date: 20100105
  Transmission Date: 20100710
  Serious: Yes (Hospitalization)
  Sender: FDA-Public Use
  Company Number: US-KINGPHARMUSA00001-K200900247

PATIENT
  Age: 56 Year
  Sex: Male

DRUGS (20)
  1. ALTACE [Suspect]
     Dosage: 1.25 MG, QD
     Route: 048
     Dates: start: 20090113, end: 20090122
  2. FUROSEMIDE [Suspect]
     Dosage: 40 MG, UNK
     Route: 048
     Dates: start: 20090113, end: 20090122
  3. AMINOPHYLLINE [Concomitant]
  4. ASPIRIN [Concomitant]
  5. EPILIM CHRONO [Concomitant]
  6. IPRATROPIUM [Concomitant]
  7. ISOSORBIDE MONONITRATE [Concomitant]
  8. MONTELUKAST SODIUM [Concomitant]
  9. QUETIAPINE FUMARATE [Concomitant]
  10. ALBUTEROL [Concomitant]
  11. FLUTICASONE W/SALMETEROL [Concomitant]
  12. SULPIRIDE [Concomitant]
  13. AMOXICILLIN AND CLAVULANATE POTASSIUM [Concomitant]
  14. LACTULOSE [Concomitant]
  15. PARAFFIN [Concomitant]
  16. LORAZEPAM [Concomitant]
  17. PARACETAMOL [Concomitant]
  18. PREDNISOLONE [Concomitant]
  19. SENNA [Concomitant]
  20. UNIPHYLLIN UNICONTIN [Concomitant]

REACTIONS (8)
  - COUGH [None]
  - CYANOSIS [None]
  - HYPOTENSION [None]
  - LOWER RESPIRATORY TRACT INFECTION [None]
  - PULMONARY OEDEMA [None]
  - RENAL FAILURE ACUTE [None]
  - SEPSIS [None]
  - SPUTUM DISCOLOURED [None]
